FAERS Safety Report 24106177 (Version 1)
Quarter: 2024Q3

REPORT INFORMATION
  Report Type: Spontaneous
  Country: JP (occurrence: JP)
  Receive Date: 20240717
  Receipt Date: 20240717
  Transmission Date: 20241016
  Serious: Yes (Other)
  Sender: FERRING
  Company Number: JP-ferring-EVA202401046FERRINGPH

PATIENT

DRUGS (3)
  1. NOCDURNA [Suspect]
     Active Substance: DESMOPRESSIN ACETATE
     Indication: Nocturia
     Dosage: 50 UG
     Route: 048
     Dates: start: 202403, end: 20240704
  2. NOCDURNA [Suspect]
     Active Substance: DESMOPRESSIN ACETATE
     Dosage: 25 UG, 1 TIME DAILY
     Route: 048
  3. VIBEGRON [Concomitant]
     Active Substance: VIBEGRON
     Indication: Nocturia
     Dosage: AA NECESSARY

REACTIONS (6)
  - Physical deconditioning [Unknown]
  - Decreased appetite [Unknown]
  - Weight decreased [Unknown]
  - Hyponatraemia [Unknown]
  - Malaise [Unknown]
  - Nausea [Unknown]

NARRATIVE: CASE EVENT DATE: 20240101
